FAERS Safety Report 5615151-3 (Version None)
Quarter: 2008Q1

REPORT INFORMATION
  Report Type: 
  Country: None (occurrence: None)
  Receive Date: 20080206
  Receipt Date: 20070827
  Transmission Date: 20080703
  Serious: No
  Sender: FDA-Public Use
  Company Number: A0676637A

PATIENT

DRUGS (2)
  1. ARIXTRA [Suspect]
     Indication: WOUND
     Route: 058
  2. UNKNOWN [Concomitant]

REACTIONS (1)
  - WOUND SECRETION [None]
